FAERS Safety Report 13578003 (Version 1)
Quarter: 2017Q2

REPORT INFORMATION
  Report Type: Spontaneous
  Country: IT (occurrence: IT)
  Receive Date: 20170524
  Receipt Date: 20170524
  Transmission Date: 20170830
  Serious: Yes (Other)
  Sender: FDA-Public Use
  Company Number: IT-ASTRAZENECA-2017SE53558

PATIENT
  Age: 75 Year
  Sex: Male

DRUGS (1)
  1. GEFITINIB [Suspect]
     Active Substance: GEFITINIB
     Indication: NON-SMALL CELL LUNG CANCER
     Dosage: 250.0MG UNKNOWN
     Route: 048
     Dates: start: 201505

REACTIONS (8)
  - Diarrhoea [Unknown]
  - Malignant neoplasm progression [Unknown]
  - Headache [Unknown]
  - Rash [Recovering/Resolving]
  - Dry mouth [Recovering/Resolving]
  - Folliculitis [Unknown]
  - Pruritus [Recovering/Resolving]
  - Paronychia [Recovering/Resolving]
